FAERS Safety Report 9772959 (Version 1)
Quarter: 2013Q4

REPORT INFORMATION
  Report Type: Spontaneous
  Country: CH (occurrence: None)
  Receive Date: 20131217
  Receipt Date: 20131217
  Transmission Date: 20140711
  Serious: Yes (Hospitalization)
  Sender: FDA-Public Use
  Company Number: 20130701

PATIENT
  Age: 52 Year
  Sex: Female
  Weight: 70 kg

DRUGS (1)
  1. FERINJECT [Suspect]
     Indication: ANAEMIA
     Route: 041

REACTIONS (4)
  - Chest pain [None]
  - Oropharyngeal pain [None]
  - Dyspnoea [None]
  - Oxygen saturation decreased [None]
